FAERS Safety Report 12912397 (Version 1)
Quarter: 2016Q4

REPORT INFORMATION
  Report Type: Report from Study
  Country: US (occurrence: US)
  Receive Date: 20161104
  Receipt Date: 20161104
  Transmission Date: 20170207
  Serious: Yes (Hospitalization, Other)
  Sender: FDA-Public Use
  Company Number: US-SAOL THERAPEUTICS-2016SAO00982

PATIENT

DRUGS (1)
  1. LIORESAL [Suspect]
     Active Substance: BACLOFEN
     Dosage: 125 ?G, \DAY
     Dates: start: 20160126

REACTIONS (2)
  - Implant site infection [Not Recovered/Not Resolved]
  - Staphylococcus test positive [Not Recovered/Not Resolved]

NARRATIVE: CASE EVENT DATE: 20160711
